FAERS Safety Report 9640358 (Version 4)
Quarter: 2014Q1

REPORT INFORMATION
  Report Type: Spontaneous
  Country: US (occurrence: US)
  Receive Date: 20131023
  Receipt Date: 20140220
  Transmission Date: 20141002
  Serious: Yes (Hospitalization, Disabling, Other)
  Sender: FDA-Public Use
  Company Number: US-009507513-0806USA08279

PATIENT
  Sex: Female
  Weight: 54.66 kg

DRUGS (3)
  1. FOSAMAX [Suspect]
     Indication: OSTEOPOROSIS PROPHYLAXIS
     Dosage: 10 MG, QD
     Route: 048
     Dates: start: 199606, end: 20010924
  2. FOSAMAX [Suspect]
     Indication: OSTEOPENIA
     Dosage: 70 MG, QW
     Route: 048
     Dates: start: 20010921, end: 20050903
  3. FOSAMAX [Suspect]
     Dosage: 70 MG, QW
     Route: 048
     Dates: end: 20061020

REACTIONS (57)
  - Femur fracture [Recovered/Resolved]
  - Bone loss [Not Recovered/Not Resolved]
  - Femur fracture [Unknown]
  - Intramedullary rod insertion [Unknown]
  - Hip fracture [Unknown]
  - Eye disorder [Unknown]
  - Squamous cell carcinoma [Unknown]
  - Muscle disorder [Unknown]
  - Hip surgery [Unknown]
  - Hip arthroplasty [Unknown]
  - Convulsion [Unknown]
  - Arthralgia [Unknown]
  - Influenza [Unknown]
  - Tracheobronchitis [Unknown]
  - Respiratory tract infection [Not Recovered/Not Resolved]
  - Pharyngitis [Not Recovered/Not Resolved]
  - Cyst [Unknown]
  - Intervertebral disc degeneration [Not Recovered/Not Resolved]
  - Kyphoscoliosis [Unknown]
  - Back disorder [Unknown]
  - Pulmonary mass [Unknown]
  - Spinal osteoarthritis [Unknown]
  - Eyelid disorder [Unknown]
  - Sebaceous hyperplasia [Unknown]
  - Actinic keratosis [Unknown]
  - Intervertebral disc space narrowing [Unknown]
  - Intervertebral disc protrusion [Unknown]
  - Cyst [Unknown]
  - Device intolerance [Not Recovered/Not Resolved]
  - Ear pain [Unknown]
  - Temporomandibular joint syndrome [Unknown]
  - Arthropathy [Unknown]
  - Urine calcium increased [Unknown]
  - Blood calcium increased [Unknown]
  - Blood cholesterol increased [Not Recovered/Not Resolved]
  - Stress fracture [Recovering/Resolving]
  - Ligament sprain [Unknown]
  - Ankle fracture [Unknown]
  - Foot fracture [Recovering/Resolving]
  - Myositis ossificans [Unknown]
  - Tendonitis [Unknown]
  - Sciatica [Unknown]
  - Medical device removal [Unknown]
  - Tendon transfer [Unknown]
  - Peripheral nervous system neoplasm [Unknown]
  - Local swelling [Unknown]
  - Confusional state [Unknown]
  - Transient ischaemic attack [Unknown]
  - Transient global amnesia [Unknown]
  - Migraine [Unknown]
  - Fall [Unknown]
  - Concussion [Unknown]
  - Arthralgia [Unknown]
  - Oedema peripheral [Unknown]
  - Arthralgia [Unknown]
  - Pain in extremity [Unknown]
  - Headache [Unknown]
